FAERS Safety Report 13656284 (Version 2)
Quarter: 2017Q3

REPORT INFORMATION
  Report Type: Spontaneous
  Country: US (occurrence: US)
  Receive Date: 20170615
  Receipt Date: 20170808
  Transmission Date: 20171127
  Serious: No
  Sender: FDA-Public Use
  Company Number: US-LEO PHARMA-303271

PATIENT
  Age: 61 Year
  Sex: Male

DRUGS (1)
  1. PICATO [Suspect]
     Active Substance: INGENOL MEBUTATE
     Indication: ACTINIC KERATOSIS
     Dosage: APPLIED TO AREA OF 3 X 3 INCH
     Route: 061
     Dates: start: 201706

REACTIONS (9)
  - Application site discomfort [Recovered/Resolved]
  - Application site swelling [Recovered/Resolved]
  - Application site reaction [Recovered/Resolved]
  - Product packaging issue [Unknown]
  - Wrong technique in product usage process [Unknown]
  - Application site exfoliation [Recovered/Resolved]
  - Eye pruritus [Recovered/Resolved]
  - Eyelid oedema [Recovered/Resolved]
  - Drug administration error [Unknown]

NARRATIVE: CASE EVENT DATE: 20170609
